FAERS Safety Report 16437534 (Version 1)
Quarter: 2019Q2

REPORT INFORMATION
  Report Type: Report from Study
  Country: US (occurrence: US)
  Receive Date: 20190615
  Receipt Date: 20190615
  Transmission Date: 20190711
  Serious: Yes (Other)
  Sender: FDA-Public Use
  Company Number: US-AMGEN-USASL2019093022

PATIENT
  Age: 63 Year
  Sex: Female

DRUGS (1)
  1. REPATHA [Suspect]
     Active Substance: EVOLOCUMAB
     Indication: HYPERCHOLESTEROLAEMIA
     Dosage: 140 MILLIGRAM, Q2WK
     Route: 065

REACTIONS (9)
  - Alanine aminotransferase abnormal [Unknown]
  - Iron overload [Unknown]
  - Blood triglycerides abnormal [Unknown]
  - Laboratory test abnormal [Unknown]
  - Mean cell haemoglobin increased [Unknown]
  - Aspartate aminotransferase abnormal [Unknown]
  - Abdominal distension [Unknown]
  - Abdominal pain upper [Unknown]
  - Gastrointestinal disorder [Unknown]
